FAERS Safety Report 18153530 (Version 2)
Quarter: 2020Q3

REPORT INFORMATION
  Report Type: Report from Study
  Country: CA (occurrence: CA)
  Receive Date: 20200816
  Receipt Date: 20200901
  Transmission Date: 20201103
  Serious: Yes (Other)
  Sender: FDA-Public Use
  Company Number: PHHY2012CA124626

PATIENT
  Sex: Female

DRUGS (3)
  1. GLEEVEC [Suspect]
     Active Substance: IMATINIB MESYLATE
     Dosage: UNK
     Route: 048
     Dates: start: 200702
  2. GLEEVEC [Suspect]
     Active Substance: IMATINIB MESYLATE
     Dosage: 400 MG
     Route: 048
     Dates: start: 20070101, end: 20200807
  3. GLEEVEC [Suspect]
     Active Substance: IMATINIB MESYLATE
     Indication: GASTROINTESTINAL STROMAL TUMOUR
     Dosage: 400 MG, QD
     Route: 048
     Dates: start: 200401

REACTIONS (12)
  - Memory impairment [Not Recovered/Not Resolved]
  - Pain in extremity [Unknown]
  - Muscle spasms [Unknown]
  - Eye haemorrhage [Unknown]
  - Aphasia [Unknown]
  - Arthropathy [Unknown]
  - Eye swelling [Unknown]
  - Primary progressive aphasia [Unknown]
  - Amnesia [Unknown]
  - Haematoma [Unknown]
  - Gait inability [Unknown]
  - Product dose omission issue [Unknown]
